FAERS Safety Report 5493267-2 (Version None)
Quarter: 2007Q4

REPORT INFORMATION
  Report Type: 
  Country: None (occurrence: None)
  Receive Date: 20071022
  Receipt Date: 20071022
  Transmission Date: 20080405
  Serious: Yes (Hospitalization)
  Sender: FDA-Public Use
  Company Number: None

PATIENT
  Age: 62 Year
  Sex: Male

DRUGS (1)
  1. PROMETHAZINE [Suspect]
     Indication: NAUSEA
     Dosage: 25MG PO
     Route: 048
     Dates: start: 20020320, end: 20070920

REACTIONS (3)
  - ILL-DEFINED DISORDER [None]
  - METABOLIC ENCEPHALOPATHY [None]
  - TOXIC ENCEPHALOPATHY [None]
